FAERS Safety Report 9240572 (Version 1)
Quarter: 2013Q2

REPORT INFORMATION
  Report Type: Spontaneous
  Country: US (occurrence: US)
  Receive Date: 20130418
  Receipt Date: 20130418
  Transmission Date: 20140414
  Serious: No
  Sender: FDA-Public Use
  Company Number: US-SANOFI-AVENTIS-2012SA061100

PATIENT
  Sex: Female

DRUGS (2)
  1. ENOXAPARIN SODIUM [Suspect]
     Indication: PULMONARY EMBOLISM
     Dosage: THERAPY START DATE: COUPLE OF WEEKS AGO.
     Route: 065
  2. WARFARIN [Suspect]
     Indication: PULMONARY EMBOLISM
     Dosage: THERAPY START DATE: COUPLE OF WEEKS AGO.
     Route: 065

REACTIONS (3)
  - International normalised ratio abnormal [Unknown]
  - Injection site erythema [Unknown]
  - Injection site pruritus [Unknown]
